FAERS Safety Report 6973245-4 (Version None)
Quarter: 2010Q3

REPORT INFORMATION
  Report Type: 
  Country: None (occurrence: None)
  Receive Date: 20100909
  Receipt Date: 20100901
  Transmission Date: 20110219
  Serious: Yes (Life-Threatening, Hospitalization)
  Sender: FDA-Public Use
  Company Number: FR-ROCHE-725464

PATIENT

DRUGS (2)
  1. PEGINTERFERON ALFA-2A [Suspect]
     Dosage: BEGINING 14 DAYS AFTER START OF IMATINIB THERAPY, AS PER PROTOCOL.
     Route: 065
  2. IMATINIB [Suspect]
     Dosage: THERAPY STARTED 14 DAYS PRIOR TO PEG-INTERFERON ALFA 2A.
     Route: 065

REACTIONS (2)
  - FEBRILE BONE MARROW APLASIA [None]
  - HEPATOTOXICITY [None]
